FAERS Safety Report 18235842 (Version 1)
Quarter: 2020Q3

REPORT INFORMATION
  Report Type: Report from Study
  Country: CA (occurrence: CA)
  Receive Date: 20200905
  Receipt Date: 20200905
  Transmission Date: 20201103
  Serious: Yes (Other)
  Sender: FDA-Public Use
  Company Number: CA-TEVA-2020-CA-1823967

PATIENT
  Sex: Female

DRUGS (13)
  1. COSENTYX [Suspect]
     Active Substance: SECUKINUMAB
     Indication: PSORIASIS
     Route: 058
  2. ACITRETIN. [Concomitant]
     Active Substance: ACITRETIN
     Route: 065
  3. METHOTREXATE. [Suspect]
     Active Substance: METHOTREXATE
     Route: 065
  4. COSENTYX [Suspect]
     Active Substance: SECUKINUMAB
     Indication: PSORIATIC ARTHROPATHY
     Route: 058
  5. REMICADE [Concomitant]
     Active Substance: INFLIXIMAB
     Route: 065
  6. FOLIC ACID. [Suspect]
     Active Substance: FOLIC ACID
     Indication: PRODUCT USED FOR UNKNOWN INDICATION
     Route: 065
  7. HUMIRA [Suspect]
     Active Substance: ADALIMUMAB
     Indication: PRODUCT USED FOR UNKNOWN INDICATION
     Route: 065
  8. CLOBETASOL [Concomitant]
     Active Substance: CLOBETASOL
     Route: 065
  9. BETAMETHASONE DIPROPIONATE/CALCIPOTRIOL [Concomitant]
     Active Substance: BETAMETHASONE DIPROPIONATE\CALCIPOTRIENE
     Route: 065
  10. SIMPONI [Concomitant]
     Active Substance: GOLIMUMAB
     Route: 065
  11. COSENTYX [Suspect]
     Active Substance: SECUKINUMAB
     Route: 065
  12. COSENTYX [Suspect]
     Active Substance: SECUKINUMAB
     Route: 065
  13. PREDNISONE. [Concomitant]
     Active Substance: PREDNISONE
     Route: 065

REACTIONS (9)
  - Psoriatic arthropathy [Unknown]
  - Vomiting [Unknown]
  - Dizziness [Unknown]
  - Hypersensitivity [Unknown]
  - Temperature intolerance [Unknown]
  - Vasculitis [Unknown]
  - Cellulitis [Unknown]
  - Hypersomnia [Unknown]
  - Nausea [Unknown]
